FAERS Safety Report 14176734 (Version 1)
Quarter: 2017Q4

REPORT INFORMATION
  Report Type: Spontaneous
  Country: CZ (occurrence: CZ)
  Receive Date: 20171110
  Receipt Date: 20171110
  Transmission Date: 20180321
  Serious: Yes (Hospitalization, Other)
  Sender: FDA-Public Use
  Company Number: CZ-ORION CORPORATION ORION PHARMA-17_00002695

PATIENT
  Age: 61 Year
  Sex: Female

DRUGS (12)
  1. PERINDOPRIL [Concomitant]
     Active Substance: PERINDOPRIL
     Route: 065
  2. SIMGAL [Concomitant]
     Active Substance: SIMVASTATIN
     Dosage: STRENGTH: 10 MG
     Route: 065
  3. OMEPRAZOL [Concomitant]
     Active Substance: OMEPRAZOLE
     Route: 065
  4. APO-METOPROLOL 50 [Concomitant]
     Route: 065
  5. ACIDUM FOLICUM [Concomitant]
     Active Substance: FOLIC ACID
     Route: 065
  6. VIGANTOL [Concomitant]
     Active Substance: CHOLECALCIFEROL
     Route: 065
  7. METHOTREXATE (TRADE NAME UNKNOWN) [Suspect]
     Active Substance: METHOTREXATE
     Indication: RHEUMATOID ARTHRITIS
     Route: 048
     Dates: start: 201708, end: 201710
  8. MILURIT 100 [Concomitant]
     Route: 065
  9. BIOFENAC [Concomitant]
     Active Substance: ACECLOFENAC
     Route: 065
  10. PREDNISON [Concomitant]
     Active Substance: PREDNISONE
     Route: 065
  11. HUMIRA [Suspect]
     Active Substance: ADALIMUMAB
     Indication: RHEUMATOID ARTHRITIS
     Route: 058
     Dates: start: 20170426, end: 20170927
  12. AGEN 5 [Concomitant]
     Route: 065

REACTIONS (4)
  - Metastases to peritoneum [Unknown]
  - Dyspnoea [Unknown]
  - Weight increased [Unknown]
  - Abdominal distension [Unknown]

NARRATIVE: CASE EVENT DATE: 201709
